FAERS Safety Report 10195827 (Version 1)
Quarter: 2014Q2

REPORT INFORMATION
  Report Type: Spontaneous
  Country: GB (occurrence: None)
  Receive Date: 20140520
  Receipt Date: 20140520
  Transmission Date: 20141212
  Serious: No
  Sender: FDA-Public Use
  Company Number: B0979775A

PATIENT
  Sex: 0

DRUGS (1)
  1. ZANAMIVIR (FORMULATION UNKNOWN) (GENERIC) (ZANAMIVIR) [Suspect]
     Indication: H1N1 INFLUENZA
     Route: 064

REACTIONS (3)
  - Spina bifida occulta [None]
  - Foetal exposure during pregnancy [None]
  - Maternal drugs affecting foetus [None]
